FAERS Safety Report 25510119 (Version 2)
Quarter: 2025Q4

REPORT INFORMATION
  Report Type: Report from Study
  Country: US (occurrence: US)
  Receive Date: 20250703
  Receipt Date: 20251204
  Transmission Date: 20260117
  Serious: Yes (Hospitalization)
  Sender: TAKEDA
  Company Number: US-TAKEDA-2025TUS059757

PATIENT
  Age: 74 Year
  Sex: Male

DRUGS (2)
  1. PENTASA [Suspect]
     Active Substance: MESALAMINE
     Indication: Product used for unknown indication
     Dosage: UNK
  2. PENTASA [Suspect]
     Active Substance: MESALAMINE
     Dosage: UNK

REACTIONS (4)
  - Arterial occlusive disease [Unknown]
  - Aortic aneurysm [Unknown]
  - Illness [Recovered/Resolved]
  - Product use issue [Unknown]
